FAERS Safety Report 11395792 (Version 1)
Quarter: 2015Q3

REPORT INFORMATION
  Report Type: Spontaneous
  Country: US (occurrence: None)
  Receive Date: 20150818
  Receipt Date: 20150818
  Transmission Date: 20151125
  Serious: Yes (Other)
  Sender: FDA-Public Use
  Company Number: None

PATIENT
  Age: 54 Year
  Sex: Male

DRUGS (11)
  1. TACROLIMUS. [Concomitant]
     Active Substance: TACROLIMUS
  2. VITAMIN B COMPLEX [Concomitant]
     Active Substance: CYANOCOBALAMIN\DEXPANTHENOL\NIACINAMIDE\PYRIDOXINE HYDROCHLORIDE\RIBOFLAVIN 5^-PHOSPHATE SODIUM\THIAMINE HYDROCHLORIDE\VITAMIN B COMPLEX
  3. PREDNISONE. [Concomitant]
     Active Substance: PREDNISONE
  4. MYCOPHENOLATE [Concomitant]
     Active Substance: MYCOPHENOLIC ACID
  5. OPTISON [Suspect]
     Active Substance: ALBUMIN (HUMAN)
     Indication: ECHOCARDIOGRAM
     Route: 042
  6. ALPRAZOLAM. [Concomitant]
     Active Substance: ALPRAZOLAM
  7. ASPIRIN. [Concomitant]
     Active Substance: ASPIRIN
  8. RAPAMUNE [Concomitant]
     Active Substance: SIROLIMUS
  9. VITAMIN E [Concomitant]
     Active Substance: .ALPHA.-TOCOPHEROL
  10. DOXAZOSIN [Concomitant]
     Active Substance: DOXAZOSIN\DOXAZOSIN MESYLATE
  11. PROBIOTICS [Concomitant]
     Active Substance: PROBIOTICS NOS

REACTIONS (7)
  - Constipation [None]
  - Palpitations [None]
  - Pruritus generalised [None]
  - Abdominal distension [None]
  - Obstruction gastric [None]
  - Lethargy [None]
  - Flushing [None]

NARRATIVE: CASE EVENT DATE: 20150721
